FAERS Safety Report 7643648-3 (Version None)
Quarter: 2011Q3

REPORT INFORMATION
  Report Type: 
  Country: None (occurrence: None)
  Receive Date: 20110722
  Receipt Date: 20110708
  Transmission Date: 20111222
  Serious: Yes (Hospitalization)
  Sender: FDA-Public Use
  Company Number: 2011-293

PATIENT
  Age: 52 Year
  Sex: Male

DRUGS (8)
  1. FUROSEMIDE [Concomitant]
  2. CLOZAPINE [Suspect]
     Indication: SCHIZOPHRENIA
     Dosage: 12.5-300 MG, QD
     Dates: start: 20100101, end: 20100101
  3. TAMSULOSIN HCL [Concomitant]
  4. DIVALPROEX SODIUM [Concomitant]
  5. PERPHENAZINE [Concomitant]
  6. SIMVASTATIN [Concomitant]
  7. RISPERIDONE [Concomitant]
  8. FINASTERIDE [Concomitant]

REACTIONS (5)
  - PERICARDIAL EFFUSION [None]
  - CARDIAC TAMPONADE [None]
  - PERICARDITIS [None]
  - CARDIAC ARREST [None]
  - PULMONARY EMBOLISM [None]
